FAERS Safety Report 9986347 (Version 1)
Quarter: 2014Q1

REPORT INFORMATION
  Report Type: Report from Study
  Country: US (occurrence: US)
  Receive Date: 20140307
  Receipt Date: 20140307
  Transmission Date: 20141002
  Serious: No
  Sender: FDA-Public Use
  Company Number: US-ABBVIE-13P-163-1088036-00

PATIENT
  Age: 38 Year
  Sex: Female

DRUGS (16)
  1. HUMIRA [Suspect]
     Indication: CROHN^S DISEASE
     Dates: start: 20130509
  2. NEXIUM [Concomitant]
     Indication: DYSPEPSIA
  3. CLARINEX [Concomitant]
     Indication: HYPERSENSITIVITY
  4. XIFAXAN [Concomitant]
     Indication: PROPHYLAXIS
  5. FENOFIBRATE [Concomitant]
     Indication: BLOOD CHOLESTEROL
  6. GLUMEXA [Concomitant]
     Indication: POLYCYSTIC OVARIES
  7. ROPINIROLE [Concomitant]
     Indication: RESTLESS LEGS SYNDROME
  8. ADDERALL [Concomitant]
     Indication: ATTENTION DEFICIT/HYPERACTIVITY DISORDER
  9. LUNESTA [Concomitant]
     Indication: INSOMNIA
     Dosage: AT NIGHT
  10. ABILIFY [Concomitant]
     Indication: BIPOLAR DISORDER
  11. TEGRETOL [Concomitant]
     Indication: BIPOLAR DISORDER
  12. VITAMIN B12 [Concomitant]
     Indication: PRODUCT USED FOR UNKNOWN INDICATION
  13. WOMEN^S HEALTH MULTIVITAMINS [Concomitant]
     Indication: PRODUCT USED FOR UNKNOWN INDICATION
  14. VITAMIN D [Concomitant]
     Indication: PRODUCT USED FOR UNKNOWN INDICATION
  15. CALCIUM SUPPLEMENT [Concomitant]
     Indication: PRODUCT USED FOR UNKNOWN INDICATION
  16. IRON PILL [Concomitant]
     Indication: PRODUCT USED FOR UNKNOWN INDICATION

REACTIONS (3)
  - Injection site pain [Recovered/Resolved]
  - Fatigue [Not Recovered/Not Resolved]
  - Headache [Not Recovered/Not Resolved]
